FAERS Safety Report 15595086 (Version 2)
Quarter: 2018Q4

REPORT INFORMATION
  Report Type: Spontaneous
  Country: AT (occurrence: AT)
  Receive Date: 20181106
  Receipt Date: 20181121
  Transmission Date: 20190205
  Serious: Yes (Death, Congenital Anomaly, Other)
  Sender: FDA-Public Use
  Company Number: PHHY2018AT147368

PATIENT
  Sex: Male

DRUGS (4)
  1. BETAMETHASONE. [Suspect]
     Active Substance: BETAMETHASONE
     Indication: FOETAL EXPOSURE DURING PREGNANCY
     Route: 064
  2. ATOSIBAN [Suspect]
     Active Substance: ATOSIBAN
     Indication: FOETAL EXPOSURE DURING PREGNANCY
     Dosage: UNK
     Route: 064
  3. VALACICLOVIR [Suspect]
     Active Substance: VALACYCLOVIR HYDROCHLORIDE
     Indication: FOETAL EXPOSURE DURING PREGNANCY
     Dosage: MATERNAL DOSE: 8 VALACICLOVIR PER DAY (4X2 G) IN OFF-LABEL USE
     Route: 064
  4. ATOSIBAN [Suspect]
     Active Substance: ATOSIBAN
     Indication: INFECTION PROPHYLAXIS

REACTIONS (15)
  - Congenital brain damage [Unknown]
  - Central nervous system lesion [Fatal]
  - Condition aggravated [Unknown]
  - Hepatic calcification [Unknown]
  - Congenital cytomegalovirus infection [Fatal]
  - Foetal growth restriction [Fatal]
  - Off label use [Unknown]
  - Foetal exposure during pregnancy [Unknown]
  - Low birth weight baby [Unknown]
  - Neuronal migration disorder [Fatal]
  - Polyhydramnios [Fatal]
  - Death [Fatal]
  - Hepatomegaly [Fatal]
  - Premature baby [Unknown]
  - Brain injury [Unknown]
